FAERS Safety Report 6301217-1 (Version None)
Quarter: 2009Q3

REPORT INFORMATION
  Report Type: 
  Country: None (occurrence: None)
  Receive Date: 20090807
  Receipt Date: 20090727
  Transmission Date: 20100115
  Serious: Yes (Other)
  Sender: FDA-Public Use
  Company Number: ES-JNJFOC-20090709522

PATIENT
  Age: 35 Year
  Sex: Male

DRUGS (4)
  1. REMICADE [Suspect]
     Indication: ANKYLOSING SPONDYLITIS
     Route: 042
  2. NSAIDS [Concomitant]
  3. ANTICOAGULANT [Concomitant]
  4. RABEPRAZOLE SODIUM [Concomitant]

REACTIONS (2)
  - EXTRAPULMONARY TUBERCULOSIS [None]
  - TUBERCULOSIS [None]
